FAERS Safety Report 4730888-6 (Version None)
Quarter: 2005Q3

REPORT INFORMATION
  Report Type: 
  Country: None (occurrence: None)
  Receive Date: 20050728
  Receipt Date: 20050517
  Transmission Date: 20060218
  Serious: Yes (Hospitalization)
  Sender: FDA-Public Use
  Company Number: ZICO001150

PATIENT
  Age: 53 Year
  Sex: Male
  Weight: 86.1834 kg

DRUGS (9)
  1. PRIALT [Suspect]
     Indication: PAIN
     Dosage: 0.167 MCG/HR INTRATHECAL
     Route: 037
     Dates: start: 20041118, end: 20041119
  2. TRAZODONE (TRAZODONE) [Concomitant]
  3. PROSCAR [Concomitant]
  4. CELEXA [Concomitant]
  5. NEURONTIN [Concomitant]
  6. ACTYLSALICYLIC ACID (ACETYLSALICYLIC ACID) [Concomitant]
  7. ADVAIR (ADVAIR) [Concomitant]
  8. COMBIVENT (IPRATROPIUM BROMIDE) [Concomitant]
  9. MAXZIDE (HYDROCHLOROTHIAZIDE) [Concomitant]

REACTIONS (1)
  - MENTAL STATUS CHANGES [None]
